FAERS Safety Report 17028913 (Version 2)
Quarter: 2019Q4

REPORT INFORMATION
  Report Type: Report from Study
  Country: PK (occurrence: PK)
  Receive Date: 20191114
  Receipt Date: 20191212
  Transmission Date: 20200122
  Serious: Yes (Hospitalization)
  Sender: FDA-Public Use
  Company Number: NVSC2019PK034227

PATIENT
  Age: 78 Year
  Sex: Male

DRUGS (2)
  1. STIR UP [Concomitant]
     Indication: PRODUCT USED FOR UNKNOWN INDICATION
     Route: 065
  2. EXELON PATCH [Suspect]
     Active Substance: RIVASTIGMINE
     Indication: DEMENTIA ALZHEIMER^S TYPE
     Dosage: 1 DF, QD  PATCH 15 (CM2) OR CONTAINS BASE LOADED WITH 27 MG / DAILY(DELIVERED) DOSE = 13.3 MG
     Route: 062
     Dates: start: 20160101

REACTIONS (6)
  - Chest discomfort [Unknown]
  - Restlessness [Unknown]
  - Chest pain [Unknown]
  - Myocardial infarction [Recovered/Resolved]
  - Fatigue [Unknown]
  - Dizziness [Unknown]

NARRATIVE: CASE EVENT DATE: 20190905
